FAERS Safety Report 19576733 (Version 1)
Quarter: 2021Q3

REPORT INFORMATION
  Report Type: Spontaneous
  Country: AU (occurrence: AU)
  Receive Date: 20210719
  Receipt Date: 20210719
  Transmission Date: 20211014
  Serious: Yes (Other)
  Sender: FDA-Public Use
  Company Number: AU-MYLANLABS-2021M1030105

PATIENT
  Age: 31 Year
  Sex: Male

DRUGS (3)
  1. CLOZARIL [Suspect]
     Active Substance: CLOZAPINE
     Indication: SCHIZOPHRENIA
     Dosage: UNK
     Route: 048
     Dates: start: 20120910, end: 2012
  2. CLOZARIL [Suspect]
     Active Substance: CLOZAPINE
     Dosage: UPTITRATED TO 50MG MANE AND 150MG NOCTE
     Route: 048
     Dates: start: 20120410, end: 20120426
  3. CLOZARIL [Suspect]
     Active Substance: CLOZAPINE
     Dosage: UNK
     Route: 048
     Dates: start: 20210629

REACTIONS (4)
  - Sinus tachycardia [Recovering/Resolving]
  - Chest pain [Recovering/Resolving]
  - Myocarditis [Recovering/Resolving]
  - Troponin increased [Unknown]

NARRATIVE: CASE EVENT DATE: 20120426
